FAERS Safety Report 7259139-8 (Version None)
Quarter: 2011Q1

REPORT INFORMATION
  Report Type: 
  Country: None (occurrence: None)
  Receive Date: 20110129
  Receipt Date: 20100714
  Transmission Date: 20110831
  Serious: No
  Sender: FDA-Public Use
  Company Number: US-ABBOTT-10P-163-0658362-00

PATIENT
  Sex: Female
  Weight: 56.75 kg

DRUGS (7)
  1. FOLIC ACID [Concomitant]
  2. ASCORBIC ACID [Concomitant]
  3. MAGNESIUM [Concomitant]
  4. METHOTREXATE [Concomitant]
  5. FISH OIL [Concomitant]
  6. HUMIRA [Suspect]
     Indication: RHEUMATOID ARTHRITIS
     Route: 058
  7. CALCIUM [Concomitant]

REACTIONS (6)
  - INJECTION SITE PAIN [None]
  - JOINT SWELLING [None]
  - ARTHRALGIA [None]
  - DEVICE MALFUNCTION [None]
  - INJECTION SITE ERYTHEMA [None]
  - INJECTION SITE PAPULE [None]
